APPROVED DRUG PRODUCT: PRIMIDONE
Active Ingredient: PRIMIDONE
Strength: 50MG
Dosage Form/Route: TABLET;ORAL
Application: A084903 | Product #002 | TE Code: AB
Applicant: LANNETT CO INC
Approved: May 24, 2001 | RLD: No | RS: No | Type: RX